FAERS Safety Report 5520495-X (Version None)
Quarter: 2007Q4

REPORT INFORMATION
  Report Type: 
  Country: None (occurrence: None)
  Receive Date: 20071115
  Receipt Date: 20071107
  Transmission Date: 20080405
  Serious: Yes (Other)
  Sender: FDA-Public Use
  Company Number: 2007333306

PATIENT
  Age: 73 Year
  Sex: Male
  Weight: 81.6 kg

DRUGS (2)
  1. ROGAINE 5 [Suspect]
     Indication: ALOPECIA
     Dosage: PACKAGE DIRECTIONS, USED ONLY TWICE,TOPICAL
     Route: 061
     Dates: start: 20071013, end: 20071013
  2. PROCARDIA [Concomitant]

REACTIONS (6)
  - DRY SKIN [None]
  - EYE PAIN [None]
  - EYE SWELLING [None]
  - EYELID OEDEMA [None]
  - PRURITUS [None]
  - URTICARIA [None]
